FAERS Safety Report 22915779 (Version 5)
Quarter: 2024Q1

REPORT INFORMATION
  Report Type: Spontaneous
  Country: US (occurrence: US)
  Receive Date: 20230907
  Receipt Date: 20240207
  Transmission Date: 20240410
  Serious: Yes (Other)
  Sender: FDA-Public Use
  Company Number: US-TRAVERE-2023TVT00208

PATIENT
  Age: 56 Year
  Sex: Female
  Weight: 157.85 kg

DRUGS (13)
  1. FILSPARI [Suspect]
     Active Substance: SPARSENTAN
     Indication: IgA nephropathy
     Route: 048
  2. FILSPARI [Suspect]
     Active Substance: SPARSENTAN
     Indication: Chronic kidney disease
     Route: 048
     Dates: start: 20230527
  3. FILSPARI [Suspect]
     Active Substance: SPARSENTAN
     Indication: Proteinuria
  4. FILSPARI [Suspect]
     Active Substance: SPARSENTAN
     Indication: Haematuria
  5. GABAPENTIN [Concomitant]
     Active Substance: GABAPENTIN
  6. CLONAZEPAM [Concomitant]
     Active Substance: CLONAZEPAM
  7. TRAMADOL HCL [Concomitant]
     Active Substance: TRAMADOL HYDROCHLORIDE
  8. Triamterene- HCTZ [Concomitant]
  9. ALLOPURINOL [Concomitant]
     Active Substance: ALLOPURINOL
  10. PREDNISONE [Concomitant]
     Active Substance: PREDNISONE
  11. Vitamin D-400 [Concomitant]
  12. CITALOPRAM [Concomitant]
     Active Substance: CITALOPRAM HYDROBROMIDE
  13. VITAMIN D3 100000/G POWDER [Concomitant]

REACTIONS (4)
  - Tooth disorder [Unknown]
  - Diarrhoea [None]
  - Dizziness [None]
  - Hypotension [None]

NARRATIVE: CASE EVENT DATE: 20231220
